FAERS Safety Report 4336132-6 (Version None)
Quarter: 2004Q2

REPORT INFORMATION
  Report Type: 
  Country: None (occurrence: None)
  Receive Date: 20040409
  Receipt Date: 20040218
  Transmission Date: 20050107
  Serious: Yes (Life-Threatening, Hospitalization)
  Sender: FDA-Public Use
  Company Number: GR-MERCK-0402GRC00008

PATIENT
  Age: 17 Year
  Sex: Female

DRUGS (7)
  1. CYCLOPHOSPHAMIDE [Concomitant]
     Route: 065
  2. CYTARABINE [Concomitant]
     Route: 065
  3. DECADRON [Suspect]
     Indication: ACUTE LYMPHOCYTIC LEUKAEMIA
     Route: 042
  4. DECADRON [Suspect]
     Route: 042
  5. METHOTREXATE [Concomitant]
     Route: 065
  6. VINCRISTINE SULFATE [Concomitant]
     Route: 065
  7. ASPARAGINASE (AS DRUG) [Concomitant]
     Route: 065

REACTIONS (5)
  - MUCOSAL INFLAMMATION [None]
  - MYOPATHY [None]
  - PANCYTOPENIA [None]
  - SYSTEMIC CANDIDA [None]
  - UPPER GASTROINTESTINAL HAEMORRHAGE [None]
